FAERS Safety Report 5742579-3 (Version None)
Quarter: 2008Q2

REPORT INFORMATION
  Report Type: 
  Country: None (occurrence: None)
  Receive Date: 20080515
  Receipt Date: 20080515
  Transmission Date: 20081010
  Serious: Yes (Death, Life-Threatening, Hospitalization, Other)
  Sender: FDA-Public Use
  Company Number: None

PATIENT
  Age: 91 Year
  Sex: Female
  Weight: 54.4316 kg

DRUGS (1)
  1. DIGITEK - 0.125 MG [Suspect]
     Dosage: 0.125 MG 1 PER DAY ORAL
     Route: 048
     Dates: start: 20080304, end: 20080404

REACTIONS (9)
  - ANOREXIA [None]
  - DIZZINESS [None]
  - DYSPNOEA [None]
  - EMPHYSEMA [None]
  - GASTRIC DISORDER [None]
  - HYPOTENSION [None]
  - NAUSEA [None]
  - VERTIGO [None]
  - VOMITING [None]
